FAERS Safety Report 17438874 (Version 1)
Quarter: 2020Q1

REPORT INFORMATION
  Report Type: Spontaneous
  Country: ZA (occurrence: ZA)
  Receive Date: 20200220
  Receipt Date: 20200220
  Transmission Date: 20200409
  Serious: Yes (Death)
  Sender: FDA-Public Use
  Company Number: ZA-ABBVIE-20K-143-3284591-00

PATIENT
  Sex: Male

DRUGS (1)
  1. HUMIRA [Suspect]
     Active Substance: ADALIMUMAB
     Indication: CROHN^S DISEASE
     Route: 058

REACTIONS (4)
  - Anal abscess [Fatal]
  - Prostatic abscess [Fatal]
  - Pelvic inflammatory disease [Unknown]
  - Septic shock [Fatal]

NARRATIVE: CASE EVENT DATE: 201912
